FAERS Safety Report 8510515-2 (Version None)
Quarter: 2012Q3

REPORT INFORMATION
  Report Type: 
  Country: None (occurrence: None)
  Receive Date: 20120716
  Receipt Date: 20120702
  Transmission Date: 20120928
  Serious: Yes (Other)
  Sender: FDA-Public Use
  Company Number: BR-AMGEN-BRASP2012015730

PATIENT
  Age: 31 Year
  Sex: Female
  Weight: 67 kg

DRUGS (9)
  1. NIMESULIDE [Concomitant]
     Indication: PAIN
     Dosage: 100 MG, 1X/DAY
     Dates: start: 20110801
  2. ENBREL [Suspect]
     Indication: ANKYLOSING SPONDYLITIS
     Dosage: 50 MG, 1X/WEEK
     Route: 058
     Dates: start: 20120119
  3. OMEPRAZOLE [Concomitant]
     Indication: GASTRIC DISORDER
     Dosage: 20 MG, 1X/DAY
     Dates: start: 20110801
  4. METHOTREXATE [Concomitant]
     Dosage: 7.5 MG, WEEKLY
     Dates: start: 20111001
  5. METHOTREXATE [Concomitant]
     Dosage: 15 MG, WEEKLY
     Dates: start: 20111001
  6. FOLIC ACID [Concomitant]
     Dosage: UNK
  7. ENBREL [Suspect]
     Dosage: 50 MG, QWK
     Route: 058
     Dates: start: 20120101
  8. FOLIC ACID [Concomitant]
     Dosage: 5 MG, WEEKLY
  9. PREDNISONE [Concomitant]
     Dosage: 5 MG, 1X/DAY
     Dates: start: 20110901

REACTIONS (9)
  - TONGUE DISORDER [None]
  - APTYALISM [None]
  - VIRAL INFECTION [None]
  - ANKYLOSING SPONDYLITIS [None]
  - VOMITING [None]
  - SPEECH DISORDER [None]
  - EYE IRRITATION [None]
  - PYREXIA [None]
  - BONE PAIN [None]
